FAERS Safety Report 7510019-X (Version None)
Quarter: 2011Q2

REPORT INFORMATION
  Report Type: 
  Country: None (occurrence: None)
  Receive Date: 20110527
  Receipt Date: 20110523
  Transmission Date: 20111010
  Serious: Yes (Death)
  Sender: FDA-Public Use
  Company Number: A0929030A

PATIENT
  Age: 78 Year
  Sex: Female
  Weight: 68.1 kg

DRUGS (17)
  1. NAPROXEN (ALEVE) [Concomitant]
  2. CLARITIN [Concomitant]
  3. AEROBID [Concomitant]
  4. FLONASE [Concomitant]
  5. ALLOPURINOL [Concomitant]
  6. ALBUTEROL SULFATE AUTOHALER [Concomitant]
  7. AMLODIPINE [Concomitant]
  8. MULTI-VITAMIN [Concomitant]
  9. LORAZEPAM [Concomitant]
  10. OFATUMUMAB [Suspect]
     Dosage: 1000MG EVERY 3 WEEKS
     Route: 042
     Dates: start: 20110223
  11. BACTRIM DS [Concomitant]
  12. NEUPOGEN [Concomitant]
  13. ACYCLOVIR [Concomitant]
  14. PENTOSTATIN [Suspect]
     Dosage: 2MGM2 EVERY 3 WEEKS
     Route: 042
     Dates: start: 20110223
  15. CYCLOPHOSPHAMIDE [Suspect]
     Dosage: 600MGM2 EVERY 3 WEEKS
     Route: 042
     Dates: start: 20110223
  16. ACETAMINOPHEN [Concomitant]
  17. OXYBUTYNIN [Concomitant]

REACTIONS (1)
  - DEATH [None]
